FAERS Safety Report 25565194 (Version 1)
Quarter: 2025Q3

REPORT INFORMATION
  Report Type: Spontaneous
  Country: US (occurrence: US)
  Receive Date: 20250716
  Receipt Date: 20250716
  Transmission Date: 20251020
  Serious: No
  Sender: ROCHE
  Company Number: US-ROCHE-10000334958

PATIENT
  Sex: Female

DRUGS (17)
  1. XOLAIR [Suspect]
     Active Substance: OMALIZUMAB
     Indication: Asthma
     Route: 058
  2. XOLAIR [Suspect]
     Active Substance: OMALIZUMAB
  3. ALBUTEROL SU AER 180/90 [Concomitant]
  4. IPRATROPIUM SOLO 0.5-2.5 [Concomitant]
  5. AIRSUPRA AER 90-80 MCG/ACT [Concomitant]
  6. BUPROPION HC TB2 300 MG [Concomitant]
  7. BUPROPION HC TB2 7.5 MG [Concomitant]
  8. CELEXA TAB 40 MG [Concomitant]
  9. CoQ10 cap 400mg [Concomitant]
  10. FENOFIBRATE TAB 160 mg [Concomitant]
  11. FISH OIL CAP 1200 MG [Concomitant]
  12. lamictal tab 200 mg [Concomitant]
  13. NASONEX 24 SUS 50 MCG/AC [Concomitant]
  14. saline flush sol 0.9 % [Concomitant]
  15. tizanidin H cap 4 mg [Concomitant]
  16. trazodone hc tab 300 mg [Concomitant]
  17. trelegy eli aep 100-62.5 [Concomitant]

REACTIONS (2)
  - Injection site pain [Recovered/Resolved]
  - Product quality issue [Unknown]
